FAERS Safety Report 8104706-2 (Version None)
Quarter: 2012Q1

REPORT INFORMATION
  Report Type: 
  Country: None (occurrence: None)
  Receive Date: 20120201
  Receipt Date: 20120124
  Transmission Date: 20120608
  Serious: Yes (Other)
  Sender: FDA-Public Use
  Company Number: US-ABBOTT-12P-163-0894213-00

PATIENT
  Sex: Male

DRUGS (2)
  1. HUMIRA [Suspect]
     Indication: PSORIASIS
     Route: 058
     Dates: start: 20111206, end: 20111206
  2. HUMIRA [Suspect]
     Route: 058
     Dates: start: 20111220, end: 20111229

REACTIONS (6)
  - HEADACHE [None]
  - HEPATIC ENZYME INCREASED [None]
  - HISTOPLASMOSIS [None]
  - PYREXIA [None]
  - FATIGUE [None]
  - DEHYDRATION [None]
